FAERS Safety Report 13606284 (Version 1)
Quarter: 2017Q2

REPORT INFORMATION
  Report Type: Spontaneous
  Country: US (occurrence: US)
  Receive Date: 20170602
  Receipt Date: 20170602
  Transmission Date: 20170830
  Serious: No
  Sender: FDA-Public Use
  Company Number: US-NOVEN PHARMACEUTICALS, INC.-US2016002789

PATIENT

DRUGS (7)
  1. METHOTREXATE. [Concomitant]
     Active Substance: METHOTREXATE
  2. XYREM [Concomitant]
     Active Substance: SODIUM OXYBATE
  3. LEUCOVORIN. [Concomitant]
     Active Substance: LEUCOVORIN
  4. FOLIC ACID. [Concomitant]
     Active Substance: FOLIC ACID
  5. CELECOXIB. [Concomitant]
     Active Substance: CELECOXIB
  6. DAYTRANA [Suspect]
     Active Substance: METHYLPHENIDATE
     Indication: ATTENTION DEFICIT/HYPERACTIVITY DISORDER
     Dosage: 30 MG, UNKNOWN
     Route: 062
     Dates: start: 2008
  7. DROSPIRENONE AND ETHINYL ESTRADIOL [Concomitant]
     Active Substance: DROSPIRENONE\ETHINYL ESTRADIOL

REACTIONS (2)
  - Off label use [Unknown]
  - No adverse event [Unknown]
